FAERS Safety Report 12241104 (Version 1)
Quarter: 2016Q2

REPORT INFORMATION
  Report Type: Spontaneous
  Country: US (occurrence: None)
  Receive Date: 20160405
  Receipt Date: 20160405
  Transmission Date: 20160815
  Serious: Yes (Other)
  Sender: FDA-Public Use
  Company Number: None

PATIENT
  Age: 46 Year
  Sex: Female
  Weight: 63.5 kg

DRUGS (5)
  1. SUPER B COMPLEX [Concomitant]
     Active Substance: CYANOCOBALAMIN\DEXPANTHENOL\NIACINAMIDE\PYRIDOXINE HYDROCHLORIDE\RIBOFLAVIN 5^-PHOSPHATE SODIUM\THIAMINE HYDROCHLORIDE\VITAMIN B COMPLEX
  2. XANAX [Concomitant]
     Active Substance: ALPRAZOLAM
  3. COQ10 [Concomitant]
     Active Substance: UBIDECARENONE
  4. BELSOMRA [Suspect]
     Active Substance: SUVOREXANT
     Indication: INSOMNIA
     Route: 048
     Dates: start: 20160403
  5. TUMERIC [Concomitant]
     Active Substance: TURMERIC

REACTIONS (6)
  - Hallucination, auditory [None]
  - Sleep terror [None]
  - Cough [None]
  - Sleep paralysis [None]
  - Hallucination [None]
  - Confusional state [None]

NARRATIVE: CASE EVENT DATE: 20160403
